FAERS Safety Report 8713030 (Version 2)
Quarter: 2012Q4

REPORT INFORMATION
  Report Type: 
  Country: MX (occurrence: MX)
  Receive Date: 20120808
  Receipt Date: 20120920
  Transmission Date: 20130627
  Serious: Yes (Other)
  Sender: FDA-Public Use
  Company Number: MX-BIOMARINP-002797

PATIENT
  Sex: Female
  Weight: 13.4 kg

DRUGS (4)
  1. NAGLAZYME [Suspect]
     Indication: MUCOPOLYSACCHARIDOSIS VI
     Route: 041
  2. AMOXACILIN [Concomitant]
     Indication: PHARYNGOTONSILLITIS
     Dates: start: 20120702, end: 20120709
  3. STERIMAR [Concomitant]
     Indication: NASAL CONGESTION
     Dates: start: 20120707
  4. AVAMYS [Concomitant]
     Indication: NASAL CONGESTION
     Dates: start: 20120702, end: 20120723

REACTIONS (2)
  - VIth nerve paralysis [Recovered/Resolved]
  - Upper respiratory tract infection [None]
